FAERS Safety Report 10048840 (Version 1)
Quarter: 2014Q1

REPORT INFORMATION
  Report Type: Spontaneous
  Country: VE (occurrence: VE)
  Receive Date: 20140331
  Receipt Date: 20140331
  Transmission Date: 20141002
  Serious: Yes (Hospitalization, Other)
  Sender: FDA-Public Use
  Company Number: PHHY2014VE035733

PATIENT
  Age: 90 Year
  Sex: Female

DRUGS (3)
  1. DIGOXIN [Suspect]
     Indication: CEREBRAL INFARCTION
     Dosage: 1 DF (0.25 MG), UNK
     Route: 048
  2. DIGOXIN [Suspect]
     Dosage: 1 DF (0.25 MG), FROM MONDAY TO FRIDAY
     Route: 048
     Dates: end: 20140319
  3. INSULIN [Concomitant]

REACTIONS (3)
  - Cerebrovascular accident [Recovering/Resolving]
  - Cardioactive drug level decreased [Unknown]
  - Poisoning [Recovering/Resolving]
